FAERS Safety Report 5370246-7 (Version None)
Quarter: 2007Q2

REPORT INFORMATION
  Report Type: 
  Country: None (occurrence: None)
  Receive Date: 20070626
  Receipt Date: 20070620
  Transmission Date: 20071010
  Serious: Yes (Other)
  Sender: FDA-Public Use
  Company Number: CH-ASTRAZENECA-2007SE03602

PATIENT
  Age: 26518 Day
  Sex: Male
  Weight: 94 kg

DRUGS (5)
  1. BLOPRESS PLUS [Suspect]
     Indication: HYPERTENSION
     Dosage: CANDESARTAN CILEXETIL 16 MG AND HYDROCHLOROTHIAZIDE 12,5 MG
     Route: 048
     Dates: start: 20070407
  2. AMLODIPINE [Concomitant]
     Indication: HYPERTENSION
     Route: 048
  3. ATORVASTATIN CALCIUM [Concomitant]
     Indication: HYPERLIPIDAEMIA
     Route: 048
  4. MARCUMAR [Concomitant]
     Indication: ATRIAL FIBRILLATION
     Route: 048
  5. BETASERC [Concomitant]
     Route: 048

REACTIONS (1)
  - INTERNATIONAL NORMALISED RATIO INCREASED [None]
